FAERS Safety Report 8504655 (Version 2)
Quarter: 2012Q4

REPORT INFORMATION
  Report Type: Report from Study
  Country: DE (occurrence: DE)
  Receive Date: 20120411
  Receipt Date: 20120921
  Transmission Date: 20130627
  Serious: Yes (Hospitalization)
  Sender: FDA-Public Use
  Company Number: DE-PFIZER INC-2012086113

PATIENT
  Age: 49 Year
  Sex: Male
  Weight: 141 kg

DRUGS (7)
  1. SOMATROPIN [Suspect]
     Indication: HYPOPITUITARISM
     Dosage: 0.3 unit not provided, 1x/day
     Dates: start: 20080118, end: 20080331
  2. SOMATROPIN [Suspect]
     Dosage: 0.3 unit not provided, 1x/day
     Dates: start: 20080718
  3. BISOPROLOL [Concomitant]
     Dosage: 20 mg, daily
     Dates: start: 2003
  4. DOSTINEX [Concomitant]
     Dosage: 0.5 mg, weekly
     Dates: start: 2003
  5. HYDROCORTISONE [Concomitant]
     Indication: BLOOD CORTICOTROPHIN DECREASED
     Dosage: 25 mg, daily
     Dates: start: 2003
  6. TESTOVIRON [Concomitant]
     Indication: BLOOD LUTEINISING HORMONE DECREASED
     Dosage: 250 mg, monthly
  7. TESTOVIRON [Concomitant]
     Indication: BLOOD FOLLICLE STIMULATING HORMONE DECREASED

REACTIONS (1)
  - Tendon rupture [Unknown]
